FAERS Safety Report 17020686 (Version 2)
Quarter: 2019Q4

REPORT INFORMATION
  Report Type: Spontaneous
  Country: AU (occurrence: AU)
  Receive Date: 20191112
  Receipt Date: 20191125
  Transmission Date: 20200122
  Serious: Yes (Other)
  Sender: FDA-Public Use
  Company Number: AU-JNJFOC-20191047736

PATIENT
  Age: 75 Year

DRUGS (3)
  1. TAPENTADOL [Suspect]
     Active Substance: TAPENTADOL
     Indication: PRODUCT USED FOR UNKNOWN INDICATION
     Dosage: 50 MG TAPENTADOL MR GIVEN AT 08.23 + TAPENTADOL 50MG IR AT 11.50
     Route: 065
  2. MORPHINE SULFATE PENTAHYDRATE [Suspect]
     Active Substance: MORPHINE SULFATE
     Indication: PRODUCT USED FOR UNKNOWN INDICATION
     Route: 037
     Dates: start: 20190220
  3. DUROGESIC [Suspect]
     Active Substance: FENTANYL
     Indication: PAIN MANAGEMENT
     Route: 065
     Dates: start: 20190220

REACTIONS (6)
  - Hallucination, visual [Unknown]
  - Sedation complication [Recovered/Resolved]
  - Nausea [Unknown]
  - Altered state of consciousness [Unknown]
  - Hypotension [Unknown]
  - Pruritus [Unknown]

NARRATIVE: CASE EVENT DATE: 20190221
